FAERS Safety Report 9004643 (Version 1)
Quarter: 2013Q1

REPORT INFORMATION
  Report Type: Spontaneous
  Country: US (occurrence: None)
  Receive Date: 20130103
  Receipt Date: 20130103
  Transmission Date: 20140127
  Serious: Yes (Other)
  Sender: FDA-Public Use
  Company Number: None

PATIENT
  Age: 67 Year
  Sex: Female
  Weight: 100.7 kg

DRUGS (1)
  1. RECLAST [Suspect]

REACTIONS (4)
  - Arthralgia [None]
  - Pyrexia [None]
  - Pain [None]
  - Walking aid user [None]
